FAERS Safety Report 17760810 (Version 1)
Quarter: 2020Q2

REPORT INFORMATION
  Report Type: Spontaneous
  Country: RO (occurrence: RO)
  Receive Date: 20200508
  Receipt Date: 20200508
  Transmission Date: 20200714
  Serious: Yes (Hospitalization, Disabling, Other)
  Sender: FDA-Public Use
  Company Number: RO-MYLANLABS-2020M1044955

PATIENT
  Sex: Female

DRUGS (7)
  1. DARUNAVIR [Concomitant]
     Active Substance: DARUNAVIR
     Indication: HIV INFECTION
     Dosage: UNK
  2. RITONAVIR. [Suspect]
     Active Substance: RITONAVIR
     Indication: HIV INFECTION
     Dosage: UNK
  3. LOPINAVIR [Suspect]
     Active Substance: LOPINAVIR
     Indication: HIV INFECTION
     Dosage: UNK
  4. ZIDOVUDINE. [Suspect]
     Active Substance: ZIDOVUDINE
     Indication: HIV INFECTION
     Dosage: UNK
  5. LAMIVUDINE. [Suspect]
     Active Substance: LAMIVUDINE
     Indication: HIV INFECTION
     Dosage: UNK
  6. ZIAGEN [Concomitant]
     Active Substance: ABACAVIR SULFATE
     Indication: HIV INFECTION
     Dosage: UNK
  7. RALTEGRAVIR. [Concomitant]
     Active Substance: RALTEGRAVIR
     Indication: HIV INFECTION
     Dosage: UNK

REACTIONS (24)
  - Diplopia [Recovered/Resolved]
  - Aqueductal stenosis [Recovered/Resolved]
  - Gait disturbance [Recovered/Resolved]
  - CD4 lymphocytes decreased [Recovered/Resolved]
  - Developmental coordination disorder [Recovered/Resolved]
  - Treatment noncompliance [Unknown]
  - Posture abnormal [Recovered/Resolved]
  - Balance disorder [Recovered/Resolved]
  - Ataxia [Recovered/Resolved]
  - Somnolence [Recovered/Resolved]
  - Hemiataxia [Recovered/Resolved]
  - Central nervous system lesion [Recovered/Resolved]
  - Cerebral atrophy [Recovered/Resolved]
  - Dysarthria [Recovered/Resolved]
  - Bedridden [Recovered/Resolved]
  - Incontinence [Recovered/Resolved]
  - Progressive multifocal leukoencephalopathy [Recovered/Resolved]
  - Behaviour disorder [Unknown]
  - Hemianaesthesia [Recovered/Resolved]
  - JC virus infection [Recovered/Resolved]
  - Pleocytosis [Recovered/Resolved]
  - Hydrocephalus [Recovered/Resolved]
  - Hemiparesis [Recovered/Resolved]
  - Blood HIV RNA increased [Unknown]
